FAERS Safety Report 7520399-7 (Version None)
Quarter: 2011Q2

REPORT INFORMATION
  Report Type: 
  Country: None (occurrence: None)
  Receive Date: 20110602
  Receipt Date: 20110526
  Transmission Date: 20111010
  Serious: Yes (Other)
  Sender: FDA-Public Use
  Company Number: JP-B.I. PHARMACEUTICALS,INC./RIDGEFIELD-2011-BP-10234NB

PATIENT
  Sex: Female
  Weight: 51 kg

DRUGS (6)
  1. MICARDIS [Suspect]
     Indication: HYPERTENSION
     Dosage: 20 MG
     Route: 048
     Dates: start: 20101021, end: 20110315
  2. LIPITOR [Suspect]
     Indication: HYPERCHOLESTEROLAEMIA
     Dosage: 10 MG
     Route: 048
     Dates: start: 20101013, end: 20110118
  3. LANSOPRAZOLE [Concomitant]
     Indication: PROPHYLAXIS
     Dosage: 15 MG
     Route: 048
     Dates: start: 20101013, end: 20110426
  4. ISOSORBIDE DINITRATE [Suspect]
     Indication: ACUTE CORONARY SYNDROME
     Dosage: 40 MG
     Route: 048
     Dates: start: 20101105, end: 20110118
  5. PLAVIX [Suspect]
     Indication: CORONARY ARTERY DISEASE
     Dosage: 375 MG
     Route: 048
     Dates: start: 20101021, end: 20101221
  6. ASPIRIN [Concomitant]
     Indication: ACUTE CORONARY SYNDROME
     Dosage: 100 MG
     Route: 048
     Dates: start: 20101013

REACTIONS (1)
  - PANCYTOPENIA [None]
